FAERS Safety Report 10621613 (Version 1)
Quarter: 2014Q4

REPORT INFORMATION
  Report Type: Spontaneous
  Country: US (occurrence: None)
  Receive Date: 20141126
  Receipt Date: 20141126
  Transmission Date: 20150529
  Serious: Yes (Disabling, Other)
  Sender: FDA-Public Use
  Company Number: None

PATIENT
  Age: 45 Year
  Sex: Male
  Weight: 185 kg

DRUGS (1)
  1. DEPO-MEDROL [Suspect]
     Active Substance: METHYLPREDNISOLONE ACETATE
     Indication: ARTHRALGIA
     Dosage: 2 CC  1 TIME  SI JOINT INJECTION
     Dates: start: 20140422, end: 20140422

REACTIONS (2)
  - Libido decreased [None]
  - Erectile dysfunction [None]

NARRATIVE: CASE EVENT DATE: 20140422
